FAERS Safety Report 19205842 (Version 1)
Quarter: 2021Q2

REPORT INFORMATION
  Report Type: Spontaneous
  Country: US (occurrence: US)
  Receive Date: 20210503
  Receipt Date: 20210503
  Transmission Date: 20210717
  Serious: No
  Sender: FDA-Public Use
  Company Number: US-FARMAPROD-202103-0452

PATIENT
  Sex: Female

DRUGS (7)
  1. OXERVATE [Suspect]
     Active Substance: CENEGERMIN-BKBJ
     Indication: ULCERATIVE KERATITIS
     Route: 047
     Dates: start: 20210329
  2. ASPIRINE [Concomitant]
     Active Substance: ASPIRIN
  3. MULTIVITAMIN [Concomitant]
     Active Substance: VITAMINS
  4. MAGNESIUM [Concomitant]
     Active Substance: MAGNESIUM
  5. METFORMIN HCL [Concomitant]
     Active Substance: METFORMIN HYDROCHLORIDE
  6. METOPROLOL/HYDROCHLOROTHIAZIDE [Concomitant]
     Active Substance: HYDROCHLOROTHIAZIDE\METOPROLOL
  7. OXERVATE [Suspect]
     Active Substance: CENEGERMIN-BKBJ
     Indication: HYPOAESTHESIA EYE

REACTIONS (2)
  - Therapy interrupted [Unknown]
  - Tremor [Unknown]
